FAERS Safety Report 17206804 (Version 2)
Quarter: 2020Q3

REPORT INFORMATION
  Report Type: Spontaneous
  Country: US (occurrence: US)
  Receive Date: 20191227
  Receipt Date: 20200728
  Transmission Date: 20201102
  Serious: Yes (Hospitalization)
  Sender: FDA-Public Use
  Company Number: US-ROCHE-2509427

PATIENT
  Age: 72 Year
  Sex: Male

DRUGS (2)
  1. ESBRIET [Suspect]
     Active Substance: PIRFENIDONE
     Route: 048
     Dates: start: 201806
  2. ESBRIET [Suspect]
     Active Substance: PIRFENIDONE
     Indication: IDIOPATHIC PULMONARY FIBROSIS
     Dosage: ONGOING: ON HOLD
     Route: 048
     Dates: start: 20180518

REACTIONS (2)
  - Intestinal obstruction [Unknown]
  - Intestinal obstruction [Unknown]

NARRATIVE: CASE EVENT DATE: 201911
